FAERS Safety Report 9206924 (Version 1)
Quarter: 2013Q2

REPORT INFORMATION
  Report Type: Spontaneous
  Country: US (occurrence: None)
  Receive Date: 20130402
  Receipt Date: 20130402
  Transmission Date: 20140414
  Serious: Yes (Hospitalization)
  Sender: FDA-Public Use
  Company Number: None

PATIENT
  Age: 74 Year
  Sex: Female
  Weight: 53.3 kg

DRUGS (2)
  1. CARBOPLATIN [Suspect]
     Dates: end: 20130121
  2. PACLITAXEL (TAXOL) [Suspect]
     Dates: end: 20130121

REACTIONS (1)
  - Hypotension [None]
